FAERS Safety Report 5473775-0 (Version None)
Quarter: 2007Q3

REPORT INFORMATION
  Report Type: 
  Country: None (occurrence: None)
  Receive Date: 20070831
  Receipt Date: 20070622
  Transmission Date: 20080115
  Serious: No
  Sender: FDA-Public Use
  Company Number: 243463

PATIENT
  Age: 69 Year
  Sex: Female

DRUGS (8)
  1. LUCENTIS [Suspect]
     Indication: DRUG USE FOR UNKNOWN INDICATION
     Dates: start: 20070621
  2. DIOVAN [Concomitant]
  3. ARIMIDEX [Concomitant]
  4. OXYBUTYNIN CHLORIDE [Concomitant]
  5. HYDROCHLOROTHIAZIDE [Concomitant]
  6. CALCIUM(CALCIUM NOS) [Concomitant]
  7. VITAMIN D(CHOLECALCIFEROL) [Concomitant]
  8. EYE CAPS(UNK INGREDIENTS) (GENERIC COMPONENT(S) NOT KNOWN) [Concomitant]

REACTIONS (1)
  - VISUAL DISTURBANCE [None]
